FAERS Safety Report 9242040 (Version 1)
Quarter: 2013Q2

REPORT INFORMATION
  Report Type: Spontaneous
  Country: DE (occurrence: CA)
  Receive Date: 20130419
  Receipt Date: 20130419
  Transmission Date: 20140414
  Serious: Yes (Hospitalization)
  Sender: FDA-Public Use
  Company Number: CA-FRI-1000044491

PATIENT
  Age: 75 Year
  Sex: Female

DRUGS (1)
  1. ROFLUMILAST [Suspect]
     Dosage: 250 MCG
     Route: 048
     Dates: start: 20130113

REACTIONS (4)
  - Oedema peripheral [Recovering/Resolving]
  - Burning sensation [Recovered/Resolved]
  - Chest pain [Recovered/Resolved]
  - Medication error [Unknown]
